FAERS Safety Report 17540797 (Version 1)
Quarter: 2020Q1

REPORT INFORMATION
  Report Type: Spontaneous
  Country: US (occurrence: US)
  Receive Date: 20200313
  Receipt Date: 20200313
  Transmission Date: 20200409
  Serious: Yes (Other)
  Sender: FDA-Public Use
  Company Number: US-CATALYST PHARMACEUTICALS, INC-2020CAT00098

PATIENT
  Age: 57 Year
  Sex: Male
  Weight: 96.15 kg

DRUGS (5)
  1. UNSPECIFIED INHALER (^NEUCLUS^) [Concomitant]
  2. UNSPECIFIED MEDICATION (^DOFALINE^) [Concomitant]
  3. ALBUTEROL INHALER [Concomitant]
     Active Substance: ALBUTEROL
  4. FIRDAPSE [Suspect]
     Active Substance: AMIFAMPRIDINE
     Indication: MYASTHENIC SYNDROME
     Dosage: 10 MG, 3X/DAY
     Route: 048
     Dates: start: 20200228, end: 20200229
  5. UNSPECIFIED BREATHING TREATMENTS [Concomitant]

REACTIONS (7)
  - Chest discomfort [Recovered/Resolved]
  - Tremor [Recovered/Resolved]
  - Diplopia [Recovering/Resolving]
  - Nausea [Recovered/Resolved]
  - Oxygen saturation decreased [Recovered/Resolved]
  - Dyspnoea [Recovered/Resolved]
  - Diarrhoea [Recovered/Resolved]

NARRATIVE: CASE EVENT DATE: 20200229
